FAERS Safety Report 17677848 (Version 2)
Quarter: 2020Q2

REPORT INFORMATION
  Report Type: Report from Study
  Country: None (occurrence: CH)
  Receive Date: 20200416
  Receipt Date: 20200420
  Transmission Date: 20200714
  Serious: Yes (Death)
  Sender: FDA-Public Use
  Company Number: CH-ABBVIE-20K-151-3367552-00

PATIENT
  Sex: Male

DRUGS (3)
  1. DUODOPA [Suspect]
     Active Substance: CARBIDOPA\LEVODOPA
     Dosage: MD: 5 ML, CONTINUOUS RATE-DAY: 2.7 ML/H, EXTRA DOSE: 1 ML. 1 CASSETTE/DAY, 16H THERAPY
     Route: 050
     Dates: start: 20190215
  2. DUODOPA [Suspect]
     Active Substance: CARBIDOPA\LEVODOPA
     Indication: PARKINSON^S DISEASE
     Route: 050
     Dates: start: 20161005, end: 20180510
  3. DUODOPA [Suspect]
     Active Substance: CARBIDOPA\LEVODOPA
     Dosage: MD: 7.3 ML, CONTINUOUS RATE-DAY: 2.7 ML/H, EXTRA DOSE: 1 ML. 1 CASSETTE/DAY, 16H THERAPY
     Route: 050
     Dates: start: 20180510, end: 20190215

REACTIONS (1)
  - Asthenia [Fatal]
